FAERS Safety Report 10177032 (Version 2)
Quarter: 2014Q2

REPORT INFORMATION
  Report Type: Spontaneous
  Country: US (occurrence: None)
  Receive Date: 20140514
  Receipt Date: 20140618
  Transmission Date: 20141212
  Serious: Yes (Hospitalization)
  Sender: FDA-Public Use
  Company Number: IMP_07631_2014

PATIENT
  Age: 32 Year
  Sex: Male

DRUGS (9)
  1. DIVALPROEX [Suspect]
     Indication: PRODUCT USED FOR UNKNOWN INDICATION
  2. CHLORPROMAZINE [Suspect]
     Indication: PRODUCT USED FOR UNKNOWN INDICATION
  3. HALOPERIDOL [Suspect]
     Indication: PRODUCT USED FOR UNKNOWN INDICATION
     Dosage: (7 MG, [2 MG DAILY (MORNINGS) AND 5 MG AT BEDTIME])
  4. BENZTROPINE [Suspect]
     Indication: PRODUCT USED FOR UNKNOWN INDICATION
  5. HYDROXYZINE [Suspect]
     Indication: ANXIETY
  6. CITALOPRAM [Concomitant]
  7. ACETAMINOPHEN [Concomitant]
  8. LEVOTHYROXINE [Concomitant]
  9. PSYLLIUM [Concomitant]

REACTIONS (12)
  - Neuroleptic malignant syndrome [None]
  - Arachnoid cyst [None]
  - PO2 increased [None]
  - Blood creatinine increased [None]
  - Blood glucose increased [None]
  - Blood lactic acid increased [None]
  - Myoglobin urine present [None]
  - Blood pH decreased [None]
  - PCO2 decreased [None]
  - Blood bicarbonate decreased [None]
  - Blood magnesium decreased [None]
  - Meningitis bacterial [None]
